FAERS Safety Report 11652148 (Version 5)
Quarter: 2016Q2

REPORT INFORMATION
  Report Type: Spontaneous
  Country: JP (occurrence: JP)
  Receive Date: 20151022
  Receipt Date: 20160407
  Transmission Date: 20160815
  Serious: Yes (Hospitalization)
  Sender: FDA-Public Use
  Company Number: JP-ELI_LILLY_AND_COMPANY-JP201509007983

PATIENT
  Age: 90 Year
  Sex: Male
  Weight: 57 kg

DRUGS (23)
  1. OLMETEC [Concomitant]
     Active Substance: OLMESARTAN MEDOXOMIL
     Dosage: 10 MG, QD
     Route: 048
  2. PINATOS [Concomitant]
     Active Substance: IBUDILAST
     Dosage: 10 MG, TID
     Route: 048
  3. OMEPRAL                            /00661201/ [Concomitant]
     Active Substance: OMEPRAZOLE
     Dosage: 10 MG, QD
     Route: 048
  4. LUNESTA [Concomitant]
     Active Substance: ESZOPICLONE
     Dosage: 20 MG, QD
     Route: 048
  5. BASEN                              /01290601/ [Concomitant]
     Active Substance: VOGLIBOSE
     Dosage: UNK UNK, UNKNOWN
     Route: 065
  6. LORATADINE. [Concomitant]
     Active Substance: LORATADINE
     Dosage: 10 MG, QD
     Route: 048
  7. BAYASPIRIN [Suspect]
     Active Substance: ASPIRIN
     Indication: ANGINA PECTORIS
     Dosage: UNK UNK, UNKNOWN
     Route: 048
     Dates: start: 20150829
  8. SIGMART [Suspect]
     Active Substance: NICORANDIL
     Indication: ANGINA PECTORIS
     Dosage: UNK UNK, UNKNOWN
     Route: 042
     Dates: start: 20150829, end: 20150831
  9. PLAVIX [Concomitant]
     Active Substance: CLOPIDOGREL BISULFATE
     Dosage: UNK UNK, UNKNOWN
     Route: 065
     Dates: start: 20150908
  10. PRASUGREL HYDROCHLORIDE [Suspect]
     Active Substance: PRASUGREL HYDROCHLORIDE
     Indication: ANGINA PECTORIS
     Dosage: 20 MG, QD
     Route: 048
     Dates: start: 20150829, end: 20150829
  11. HEPARIN [Concomitant]
     Active Substance: HEPARIN SODIUM
     Indication: ANGINA PECTORIS
     Dosage: UNK UNK, UNKNOWN
     Route: 065
     Dates: start: 20150829, end: 20150830
  12. JANUVIA [Concomitant]
     Active Substance: SITAGLIPTIN PHOSPHATE
     Dosage: 25 MG, QD
     Route: 048
  13. TAMSULOISIN [Concomitant]
     Dosage: .2 MG, QD
     Route: 048
  14. EXELON [Concomitant]
     Active Substance: RIVASTIGMINE TARTRATE
     Dosage: UNK UNK, UNKNOWN
     Route: 065
  15. BAYASPIRIN [Suspect]
     Active Substance: ASPIRIN
     Indication: CORONARY ARTERIAL STENT INSERTION
  16. VASOLAN                            /00014302/ [Concomitant]
     Active Substance: VERAPAMIL HYDROCHLORIDE
     Dosage: UNK UNK, UNKNOWN
     Route: 065
  17. WARFARIN [Concomitant]
     Active Substance: WARFARIN
     Dosage: 1.5 MG, QD
     Route: 048
  18. MAGMITT [Concomitant]
     Active Substance: MAGNESIUM OXIDE
     Dosage: UNK UNK, UNKNOWN
     Route: 065
  19. NITOROL [Concomitant]
     Active Substance: ISOSORBIDE DINITRATE
     Dosage: UNK UNK, UNKNOWN
     Route: 065
  20. DAONIL [Concomitant]
     Active Substance: GLYBURIDE
     Dosage: 1.25 MG, QD
     Route: 048
  21. SERMION                            /00396401/ [Concomitant]
     Dosage: 5 MG, TID
     Route: 048
  22. PRASUGREL HYDROCHLORIDE [Suspect]
     Active Substance: PRASUGREL HYDROCHLORIDE
     Dosage: 3.75 MG, QD
     Route: 048
     Dates: start: 20150830, end: 20150907
  23. AMLODIPINE [Concomitant]
     Active Substance: AMLODIPINE BESYLATE
     Dosage: 5 MG, QD
     Route: 048

REACTIONS (1)
  - Interstitial lung disease [Recovering/Resolving]

NARRATIVE: CASE EVENT DATE: 20150901
